FAERS Safety Report 22276558 (Version 3)
Quarter: 2024Q2

REPORT INFORMATION
  Report Type: Report from Study
  Country: US (occurrence: US)
  Receive Date: 20230503
  Receipt Date: 20240621
  Transmission Date: 20240716
  Serious: Yes (Hospitalization)
  Sender: FDA-Public Use
  Company Number: US-GBT-022027

PATIENT
  Age: 25 Year
  Sex: Male

DRUGS (10)
  1. VOXELOTOR [Suspect]
     Active Substance: VOXELOTOR
     Indication: Anaemia
     Dosage: 1500 MG, 1X/DAY
     Dates: start: 20200101
  2. VOXELOTOR [Suspect]
     Active Substance: VOXELOTOR
     Indication: Transfusion
  3. VOXELOTOR [Suspect]
     Active Substance: VOXELOTOR
     Indication: Sickle cell disease
  4. Buprenorphine (Butrans) 10 mcg/hr transdermal patch [Concomitant]
     Indication: Sickle cell disease
     Dosage: APPLY 1 PATCH EVERY WEEK;DOSE:
     Route: 062
     Dates: start: 20220629
  5. GABAPENTIN [Concomitant]
     Active Substance: GABAPENTIN
     Indication: Sickle cell disease
     Dosage: 800 MG, 3X/DAY
     Route: 048
     Dates: start: 20211220
  6. GLUTAMINE [ALANYL GLUTAMINE] [Concomitant]
     Indication: Sickle cell disease
     Dosage: 10 G, 2X/DAY
     Route: 048
     Dates: start: 20190603
  7. HYDROXYUREA [Concomitant]
     Active Substance: HYDROXYUREA
     Indication: Sickle cell disease
     Dosage: 1500 MG, 1X/DAY
     Route: 048
     Dates: start: 20160926
  8. OXYCODONE HYDROCHLORIDE [Concomitant]
     Active Substance: OXYCODONE HYDROCHLORIDE
     Indication: Sickle cell disease
     Dosage: 30 MG, OXYCODONE IR
     Route: 048
     Dates: start: 20211220
  9. ERGOCALCIFEROL [Concomitant]
     Active Substance: ERGOCALCIFEROL
     Indication: Vitamin D deficiency
     Dosage: 50,000 UNIT , VITAMIN D2
     Route: 048
  10. FOLIC ACID [Concomitant]
     Active Substance: FOLIC ACID

REACTIONS (2)
  - Sickle cell anaemia with crisis [Recovered/Resolved]
  - Nausea [Recovered/Resolved]

NARRATIVE: CASE EVENT DATE: 20230301
